FAERS Safety Report 11663582 (Version 1)
Quarter: 2015Q4

REPORT INFORMATION
  Report Type: Spontaneous
  Country: US (occurrence: US)
  Receive Date: 20151027
  Receipt Date: 20151027
  Transmission Date: 20160304
  Serious: Yes (Death, Other)
  Sender: FDA-Public Use
  Company Number: US-ENDO PHARMACEUTICALS INC.-2015-003491

PATIENT
  Sex: Female
  Weight: 99.88 kg

DRUGS (2)
  1. LACTULOSE ORAL SOLUTION [Suspect]
     Active Substance: LACTULOSE
     Indication: HEPATIC FAILURE
     Dosage: 120 ML
     Route: 048
     Dates: start: 2010, end: 20151009
  2. XIFAXAN [Concomitant]
     Active Substance: RIFAXIMIN
     Indication: HEPATIC INFECTION
     Route: 065

REACTIONS (4)
  - Diarrhoea [Unknown]
  - Breast cancer recurrent [Unknown]
  - Drug dose omission [Recovered/Resolved]
  - Hypersensitivity [Unknown]

NARRATIVE: CASE EVENT DATE: 2012
